FAERS Safety Report 9671861 (Version 4)
Quarter: 2013Q4

REPORT INFORMATION
  Report Type: Spontaneous
  Country: NL (occurrence: NL)
  Receive Date: 20131106
  Receipt Date: 20131129
  Transmission Date: 20140711
  Serious: Yes (Other)
  Sender: FDA-Public Use
  Company Number: NL-JNJFOC-20131101027

PATIENT
  Age: 75 Year
  Sex: Female

DRUGS (11)
  1. XARELTO [Suspect]
     Indication: THROMBOSIS PROPHYLAXIS
     Route: 048
     Dates: start: 20130826, end: 20130910
  2. XARELTO [Suspect]
     Indication: KNEE ARTHROPLASTY
     Route: 048
     Dates: start: 20130826, end: 20130910
  3. LACTULOSE [Concomitant]
     Route: 065
  4. OMEPRAZOLE [Concomitant]
     Route: 065
  5. FLORINEF [Concomitant]
     Route: 065
  6. CALCICHEW [Concomitant]
     Route: 065
  7. TRIAMTERENE AND HYDROCHLOROTHIAZID [Concomitant]
     Route: 065
  8. MICARDIS [Concomitant]
     Route: 065
  9. HYDROCORTISON [Concomitant]
     Route: 065
  10. ACTONEL [Concomitant]
     Route: 065
  11. THYRAX [Concomitant]
     Route: 065

REACTIONS (2)
  - Deep vein thrombosis [Not Recovered/Not Resolved]
  - Drug ineffective [Unknown]
